FAERS Safety Report 8983742 (Version 1)
Quarter: 2012Q4

REPORT INFORMATION
  Report Type: 
  Country: GB (occurrence: IL)
  Receive Date: 20121224
  Receipt Date: 20121224
  Transmission Date: 20130627
  Serious: Yes (Life-Threatening, Hospitalization)
  Sender: FDA-Public Use
  Company Number: IL-AMGEN-ISRCT2012082610

PATIENT
  Age: 65 Year
  Sex: Male
  Weight: 87 kg

DRUGS (10)
  1. DARBEPOETIN ALFA [Suspect]
     Indication: NEPHROGENIC ANAEMIA
  2. CALTRATE [Concomitant]
     Dosage: 600 mg, bid
     Dates: start: 20061015
  3. BISOPROLOL [Concomitant]
     Dosage: 5 mg, UNK
     Dates: start: 20061015
  4. ASPIRIN [Concomitant]
     Dosage: 100 mg, qd
     Dates: start: 20061015
  5. FOLIC ACID [Concomitant]
     Dosage: 5 mg, qd
     Dates: start: 20061015
  6. LANTUS [Concomitant]
     Dosage: UNK UNK, qd
     Dates: start: 20061015
  7. ATORVASTATIN CALCIUM [Concomitant]
     Dosage: 10 mg, qd
     Dates: start: 20060115
  8. NIFEDIPINE [Concomitant]
     Dosage: 60 mg, qd
     Dates: start: 20061015
  9. CLOPIDOGREL BISULFATE [Concomitant]
     Dosage: 750 mg, qd
     Dates: start: 20090916
  10. VITAMIN B [Concomitant]
     Indication: NEPHROGENIC ANAEMIA
     Dosage: UNK

REACTIONS (4)
  - Convulsion [Not Recovered/Not Resolved]
  - Sepsis [Not Recovered/Not Resolved]
  - Mechanical ventilation [Not Recovered/Not Resolved]
  - Bradycardia [Not Recovered/Not Resolved]
